FAERS Safety Report 18655156 (Version 1)
Quarter: 2020Q4

REPORT INFORMATION
  Report Type: Spontaneous
  Country: US (occurrence: US)
  Receive Date: 20201223
  Receipt Date: 20201223
  Transmission Date: 20210114
  Serious: Yes (Hospitalization)
  Sender: FDA-Public Use
  Company Number: None

PATIENT
  Sex: Male
  Weight: 85 kg

DRUGS (2)
  1. GEMCITABINE HYDROCHLORIDE. [Suspect]
     Active Substance: GEMCITABINE HYDROCHLORIDE
     Dates: end: 20201210
  2. PACLITAXEL. [Suspect]
     Active Substance: PACLITAXEL
     Dates: end: 20201210

REACTIONS (14)
  - Anion gap increased [None]
  - Diarrhoea [None]
  - Hyperkalaemia [None]
  - Blood lactic acid increased [None]
  - Hyperglycaemia [None]
  - Nausea [None]
  - Hypertension [None]
  - Rhinorrhoea [None]
  - Gastrointestinal disorder [None]
  - Vomiting [None]
  - Dyspnoea [None]
  - Abdominal pain [None]
  - Pulmonary oedema [None]
  - Pancytopenia [None]

NARRATIVE: CASE EVENT DATE: 20201116
